FAERS Safety Report 17717724 (Version 1)
Quarter: 2020Q2

REPORT INFORMATION
  Report Type: Spontaneous
  Country: ES (occurrence: ES)
  Receive Date: 20200428
  Receipt Date: 20200428
  Transmission Date: 20200714
  Serious: Yes (Hospitalization)
  Sender: FDA-Public Use
  Company Number: ES-MYLANLABS-2020M1041484

PATIENT
  Age: 82 Year
  Sex: Female

DRUGS (10)
  1. STALEVO                            /01530202/ [Concomitant]
     Active Substance: LEVOCETIRIZINE DIHYDROCHLORIDE
     Dosage: UNK
  2. GABAPENTINA ALMUS [Concomitant]
     Dosage: UNK
  3. RIVOTRIL [Concomitant]
     Active Substance: CLONAZEPAM
     Dosage: UNK
  4. XADAGO [Concomitant]
     Active Substance: SAFINAMIDE MESYLATE
     Dosage: UNK
  5. ADIRO [Concomitant]
     Active Substance: ASPIRIN
     Dosage: UNK
  6. QUETIAPINE. [Suspect]
     Active Substance: QUETIAPINE
     Indication: PRODUCT USED FOR UNKNOWN INDICATION
     Dosage: 12,5
     Route: 048
     Dates: start: 20200212, end: 20200213
  7. TRANGOREX [Concomitant]
     Active Substance: AMIODARONE HYDROCHLORIDE
     Dosage: UNK
  8. AZOPT [Concomitant]
     Active Substance: BRINZOLAMIDE
     Dosage: UNK
  9. PANTOPRAZOL ALMUS [Concomitant]
     Dosage: UNK
  10. ESCITALOPRAM [Concomitant]
     Active Substance: ESCITALOPRAM OXALATE
     Dosage: UNK

REACTIONS (3)
  - Sopor [Recovering/Resolving]
  - Somnolence [Recovering/Resolving]
  - Depressed level of consciousness [Recovering/Resolving]

NARRATIVE: CASE EVENT DATE: 20200213
